FAERS Safety Report 17238424 (Version 1)
Quarter: 2020Q1

REPORT INFORMATION
  Report Type: Spontaneous
  Country: US (occurrence: US)
  Receive Date: 20200104
  Receipt Date: 20200104
  Transmission Date: 20200409
  Serious: Yes (Disabling)
  Sender: FDA-Public Use
  Company Number: None

PATIENT
  Age: 70 Year
  Sex: Female
  Weight: 85.5 kg

DRUGS (10)
  1. VITAMIN D 1000 IU [Concomitant]
  2. MULTIVITAMIN (CENTRUM SILVER) [Concomitant]
  3. TOVIAZ [Suspect]
     Active Substance: FESOTERODINE FUMARATE
     Indication: URINARY INCONTINENCE
     Dosage: ?          QUANTITY:1 TABLET(S);?
     Route: 048
  4. LISINOPRIL 5 MG [Concomitant]
     Active Substance: LISINOPRIL
  5. WELLBUTRIN 300 XR [Concomitant]
  6. OMEPREZOLE 20 MG [Concomitant]
  7. CRESTOR [Concomitant]
     Active Substance: ROSUVASTATIN CALCIUM
  8. COQ-10 200 MG [Concomitant]
  9. TRINTELLIX [Concomitant]
     Active Substance: VORTIOXETINE HYDROBROMIDE
  10. METFORMIN [Concomitant]
     Active Substance: METFORMIN HYDROCHLORIDE

REACTIONS (4)
  - Vomiting [None]
  - Hyperhidrosis [None]
  - Asthenia [None]
  - Impaired gastric emptying [None]

NARRATIVE: CASE EVENT DATE: 20180629
